FAERS Safety Report 8487584-1 (Version None)
Quarter: 2012Q3

REPORT INFORMATION
  Report Type: 
  Country: None (occurrence: None)
  Receive Date: 20120705
  Receipt Date: 20120622
  Transmission Date: 20120928
  Serious: Yes (Other)
  Sender: FDA-Public Use
  Company Number: CA-JNJFOC-20120612007

PATIENT
  Age: 46 Year
  Sex: Female
  Weight: 87.4 kg

DRUGS (2)
  1. CORTISONE ACETATE [Concomitant]
     Route: 065
  2. REMICADE [Suspect]
     Indication: COLITIS
     Route: 042
     Dates: start: 20120403

REACTIONS (4)
  - EYE PAIN [None]
  - HAEMATOCHEZIA [None]
  - PERIORBITAL OEDEMA [None]
  - EYE PRURITUS [None]
